FAERS Safety Report 19613444 (Version 1)
Quarter: 2021Q3

REPORT INFORMATION
  Report Type: Spontaneous
  Country: US (occurrence: US)
  Receive Date: 20210725
  Receipt Date: 20210725
  Transmission Date: 20211014
  Serious: No
  Sender: FDA-Public Use
  Company Number: None

PATIENT
  Age: 59 Year
  Sex: Female

DRUGS (1)
  1. HUMIRA [Suspect]
     Active Substance: ADALIMUMAB
     Indication: COLITIS ULCERATIVE
     Dosage: OTHER DOSE:80MG/0.8ML; TITRATIOR SQ?
     Route: 058
     Dates: start: 20210609

REACTIONS (10)
  - Decreased appetite [None]
  - Insomnia [None]
  - Nausea [None]
  - Colitis ulcerative [None]
  - Asthenia [None]
  - Impaired work ability [None]
  - Malaise [None]
  - Fatigue [None]
  - Flatulence [None]
  - Anxiety [None]

NARRATIVE: CASE EVENT DATE: 20210625
